FAERS Safety Report 8406636-5 (Version None)
Quarter: 2012Q2

REPORT INFORMATION
  Report Type: 
  Country: None (occurrence: None)
  Receive Date: 20120604
  Receipt Date: 20120530
  Transmission Date: 20120825
  Serious: Yes (Hospitalization)
  Sender: FDA-Public Use
  Company Number: BR-PFIZER INC-2012131028

PATIENT
  Age: 56 Year
  Sex: Female

DRUGS (1)
  1. ALPRAZOLAM [Suspect]
     Dosage: 0.5 MG (ONE TABLET), 1X/DAY
     Route: 048
     Dates: start: 20050101

REACTIONS (1)
  - CARDIAC VENTRICULAR DISORDER [None]
